FAERS Safety Report 8800211 (Version 2)
Quarter: 2013Q1

REPORT INFORMATION
  Report Type: Spontaneous
  Country: US (occurrence: US)
  Receive Date: 20120921
  Receipt Date: 20130104
  Transmission Date: 20140127
  Serious: No
  Sender: FDA-Public Use
  Company Number: US-009507513-1208USA007252

PATIENT
  Age: 59 None
  Sex: Male

DRUGS (3)
  1. REBETOL [Suspect]
     Indication: HEPATITIS C
     Dosage: UNK
     Dates: start: 20120622
  2. VICTRELIS [Suspect]
     Indication: HEPATITIS C
     Dosage: UNK
     Dates: start: 20120721, end: 20121228
  3. PEGASYS [Concomitant]
     Indication: HEPATITIS C
     Dosage: UNK
     Dates: start: 20120622

REACTIONS (27)
  - Lip blister [Unknown]
  - Lip pain [Unknown]
  - Chapped lips [Unknown]
  - Anal pruritus [Unknown]
  - Asthenia [Unknown]
  - Depressed mood [Unknown]
  - Depression [Unknown]
  - Back pain [Unknown]
  - Asthenia [Unknown]
  - Red blood cell count decreased [Unknown]
  - Insomnia [Unknown]
  - Dysgeusia [Unknown]
  - Dysgeusia [Unknown]
  - Decreased appetite [Unknown]
  - Nausea [Unknown]
  - Eructation [Unknown]
  - Dysgeusia [Unknown]
  - Full blood count decreased [Unknown]
  - Headache [Unknown]
  - Urticaria [Unknown]
  - Diarrhoea [Unknown]
  - Weight decreased [Unknown]
  - Decreased appetite [Unknown]
  - Sleep disorder [Unknown]
  - Emotional disorder [Unknown]
  - Irritability [Unknown]
  - Nausea [Unknown]
